FAERS Safety Report 13927796 (Version 2)
Quarter: 2017Q4

REPORT INFORMATION
  Report Type: Report from Study
  Country: MX (occurrence: MX)
  Receive Date: 20170831
  Receipt Date: 20171019
  Transmission Date: 20180320
  Serious: Yes (Other)
  Sender: FDA-Public Use
  Company Number: MX-AMGEN-MEXSL2017129975

PATIENT
  Sex: Female

DRUGS (1)
  1. VECTIBIX [Suspect]
     Active Substance: PANITUMUMAB
     Indication: COLORECTAL CANCER METASTATIC
     Dosage: UNK, EVERY 15 DAYS
     Route: 042
     Dates: start: 20160906

REACTIONS (3)
  - Dry skin [Not Recovered/Not Resolved]
  - Rash generalised [Not Recovered/Not Resolved]
  - Device related infection [Unknown]
